FAERS Safety Report 8602070-3 (Version None)
Quarter: 2012Q3

REPORT INFORMATION
  Report Type: 
  Country: None (occurrence: None)
  Receive Date: 20120817
  Receipt Date: 20120803
  Transmission Date: 20120928
  Serious: No
  Sender: FDA-Public Use
  Company Number: US-ABBOTT-12P-163-0889239-00

PATIENT
  Age: 30 Year
  Sex: Male

DRUGS (8)
  1. HUMIRA [Suspect]
     Indication: PSORIASIS
     Route: 058
     Dates: start: 20111129, end: 20120101
  2. COGENTIN [Concomitant]
     Indication: ILL-DEFINED DISORDER
  3. NEXIUM [Concomitant]
     Indication: PRODUCT USED FOR UNKNOWN INDICATION
  4. BUSPAR [Concomitant]
     Indication: ANXIETY
  5. SEROQUEL [Concomitant]
     Indication: PRODUCT USED FOR UNKNOWN INDICATION
  6. CLONAZEPAM [Concomitant]
     Indication: ANXIETY
  7. LEXAPRO [Concomitant]
     Indication: ANTIDEPRESSANT THERAPY
  8. INVEGA [Concomitant]
     Indication: SCHIZOPHRENIA

REACTIONS (9)
  - PYREXIA [None]
  - COUGH [None]
  - FATIGUE [None]
  - DYSPNOEA [None]
  - CHEST PAIN [None]
  - PLEURISY [None]
  - LUNG NEOPLASM [None]
  - HEADACHE [None]
  - PSORIASIS [None]
